FAERS Safety Report 15509634 (Version 1)
Quarter: 2018Q4

REPORT INFORMATION
  Report Type: Spontaneous
  Country: US (occurrence: US)
  Receive Date: 20181010
  Receipt Date: 20181010
  Transmission Date: 20190205
  Serious: No
  Sender: FDA-Public Use
  Company Number: None

PATIENT
  Age: 64 Year
  Sex: Male

DRUGS (1)
  1. EPCLUSA [Suspect]
     Active Substance: SOFOSBUVIR\VELPATASVIR
     Indication: CHRONIC HEPATITIS C
     Dosage: 400/100MG QD PO
     Route: 048
     Dates: start: 20180912

REACTIONS (2)
  - Salivary hypersecretion [None]
  - Abdominal pain upper [None]

NARRATIVE: CASE EVENT DATE: 20181002
